FAERS Safety Report 13959115 (Version 1)
Quarter: 2017Q3

REPORT INFORMATION
  Report Type: Spontaneous
  Country: US (occurrence: US)
  Receive Date: 20170912
  Receipt Date: 20170912
  Transmission Date: 20171128
  Serious: No
  Sender: FDA-Public Use
  Company Number: US-JNJFOC-20170829076

PATIENT
  Age: 9 Year
  Sex: Male

DRUGS (2)
  1. CHILDRENS ZYRTEC ALLERGY [Suspect]
     Active Substance: CETIRIZINE HYDROCHLORIDE
     Indication: MULTIPLE ALLERGIES
     Dosage: FATHER GAVE 7.5 ML ONCE, FOLLOWED BY MOTHER GIVING 5 ML SOON AFTER
     Route: 048
     Dates: start: 20170829
  2. CHILDRENS ZYRTEC ALLERGY [Suspect]
     Active Substance: CETIRIZINE HYDROCHLORIDE
     Indication: MULTIPLE ALLERGIES
     Dosage: NIGHTLY
     Route: 048

REACTIONS (2)
  - Somnolence [Unknown]
  - Accidental overdose [Unknown]
